FAERS Safety Report 10862020 (Version 1)
Quarter: 2015Q1

REPORT INFORMATION
  Report Type: Spontaneous
  Country: SE (occurrence: SE)
  Receive Date: 20150224
  Receipt Date: 20150224
  Transmission Date: 20150721
  Serious: Yes (Other)
  Sender: FDA-Public Use
  Company Number: PHHY2015SE020271

PATIENT
  Age: 43 Year
  Sex: Female

DRUGS (1)
  1. GILENYA [Suspect]
     Active Substance: FINGOLIMOD HYDROCHLORIDE
     Indication: MULTIPLE SCLEROSIS
     Dosage: 0.5 MG, QD
     Route: 048
     Dates: start: 20130412

REACTIONS (5)
  - Ophthalmic herpes zoster [Unknown]
  - Nausea [Unknown]
  - Visual acuity reduced [Unknown]
  - Menometrorrhagia [Unknown]
  - Fatigue [Unknown]

NARRATIVE: CASE EVENT DATE: 20130501
